FAERS Safety Report 15429809 (Version 1)
Quarter: 2018Q3

REPORT INFORMATION
  Report Type: Report from Study
  Country: US (occurrence: US)
  Receive Date: 20180926
  Receipt Date: 20180926
  Transmission Date: 20181010
  Serious: No
  Sender: FDA-Public Use
  Company Number: US-IPSEN BIOPHARMACEUTICALS, INC.-2014-4320

PATIENT
  Age: 11 Year
  Sex: Female

DRUGS (8)
  1. NUTROPIN AQ [Suspect]
     Active Substance: SOMATROPIN
     Indication: TURNER^S SYNDROME
     Route: 058
     Dates: start: 20140731, end: 20141216
  2. QUADRIVALENT INFLUENZA VACCINE [Concomitant]
     Route: 030
  3. ESTRADIOL. [Concomitant]
     Active Substance: ESTRADIOL
  4. NUTROPIN AQ [Suspect]
     Active Substance: SOMATROPIN
     Route: 058
     Dates: start: 20141216, end: 20141216
  5. TENORMIN [Concomitant]
     Active Substance: ATENOLOL
     Route: 048
     Dates: start: 20140107
  6. NUTROPIN AQ [Suspect]
     Active Substance: SOMATROPIN
     Route: 058
     Dates: start: 20141219
  7. NUTROPIN AQ [Suspect]
     Active Substance: SOMATROPIN
     Route: 058
  8. FLAXSEED [Concomitant]
     Active Substance: FLAX SEED
     Dosage: 1 EACH
     Route: 048

REACTIONS (13)
  - Impulse-control disorder [Unknown]
  - Depressed mood [Unknown]
  - Food craving [Unknown]
  - Melanocytic naevus [Unknown]
  - Growth retardation [Unknown]
  - Hypoacusis [Unknown]
  - Mean cell haemoglobin concentration increased [Unknown]
  - Haemoglobin increased [Unknown]
  - Overweight [Unknown]
  - Blood triglycerides increased [Unknown]
  - Very low density lipoprotein increased [Unknown]
  - Monocyte count increased [Unknown]
  - High density lipoprotein decreased [Unknown]

NARRATIVE: CASE EVENT DATE: 20140731
